FAERS Safety Report 7798101-3 (Version None)
Quarter: 2011Q4

REPORT INFORMATION
  Report Type: 
  Country: None (occurrence: None)
  Receive Date: 20111005
  Receipt Date: 20110929
  Transmission Date: 20120403
  Serious: Yes (Death, Hospitalization)
  Sender: FDA-Public Use
  Company Number: US-CELGENEUS-163-21880-11080474

PATIENT
  Sex: Female
  Weight: 70 kg

DRUGS (1)
  1. REVLIMID [Suspect]
     Dosage: 5 MILLIGRAM
     Route: 048
     Dates: start: 20110628

REACTIONS (5)
  - DEATH [None]
  - PLATELET COUNT DECREASED [None]
  - ANAEMIA [None]
  - DYSPNOEA [None]
  - OEDEMA PERIPHERAL [None]
